FAERS Safety Report 10402775 (Version 1)
Quarter: 2014Q3

REPORT INFORMATION
  Report Type: Report from Study
  Country: US (occurrence: US)
  Receive Date: 20140822
  Receipt Date: 20140822
  Transmission Date: 20150326
  Serious: Yes (Hospitalization)
  Sender: FDA-Public Use
  Company Number: US-ACTELION-A-NJ2014-103874

PATIENT
  Age: 85 Year
  Sex: Female

DRUGS (2)
  1. RIOCIGUAT [Concomitant]
     Active Substance: RIOCIGUAT
  2. TRACLEER [Suspect]
     Active Substance: BOSENTAN\BOSENTAN MONOHYDRATE
     Indication: PULMONARY ARTERIAL HYPERTENSION
     Dosage: UNK
     Route: 048

REACTIONS (3)
  - Myocardial infarction [Unknown]
  - Chest pain [Unknown]
  - Dyspnoea [Unknown]

NARRATIVE: CASE EVENT DATE: 20140811
